FAERS Safety Report 15498948 (Version 1)
Quarter: 2018Q4

REPORT INFORMATION
  Report Type: Spontaneous
  Country: FR (occurrence: FR)
  Receive Date: 20181015
  Receipt Date: 20181015
  Transmission Date: 20190205
  Serious: Yes (Hospitalization)
  Sender: FDA-Public Use
  Company Number: FR-ALLERGAN-1848906US

PATIENT
  Age: 68 Year
  Sex: Male

DRUGS (1)
  1. ESCITALOPRAM OXALATE - BP [Suspect]
     Active Substance: ESCITALOPRAM OXALATE
     Indication: PRODUCT USED FOR UNKNOWN INDICATION
     Dosage: 10 MG, UNKNOWN
     Route: 048
     Dates: start: 201808

REACTIONS (2)
  - Liver disorder [Not Recovered/Not Resolved]
  - Jaundice [Recovering/Resolving]

NARRATIVE: CASE EVENT DATE: 20180910
